FAERS Safety Report 19047698 (Version 4)
Quarter: 2021Q3

REPORT INFORMATION
  Report Type: Other
  Country: JP (occurrence: JP)
  Receive Date: 20210324
  Receipt Date: 20210825
  Transmission Date: 20211014
  Serious: Yes (Other)
  Sender: FDA-Public Use
  Company Number: JP-ROCHE-2793898

PATIENT
  Age: 81 Year
  Sex: Female
  Weight: 51.2 kg

DRUGS (4)
  1. SATRALIZUMAB. [Suspect]
     Active Substance: SATRALIZUMAB
     Route: 058
     Dates: start: 2021
  2. SATRALIZUMAB. [Suspect]
     Active Substance: SATRALIZUMAB
     Indication: NEUROMYELITIS OPTICA SPECTRUM DISORDER
     Route: 058
     Dates: start: 20210105, end: 202101
  3. SATRALIZUMAB. [Suspect]
     Active Substance: SATRALIZUMAB
     Route: 058
     Dates: start: 202101, end: 20210202
  4. METHOTREXATE. [Suspect]
     Active Substance: METHOTREXATE
     Indication: PRODUCT USED FOR UNKNOWN INDICATION
     Dosage: DOSAGE IS UNCERTAIN.
     Route: 065

REACTIONS (1)
  - White blood cell count decreased [Recovered/Resolved]

NARRATIVE: CASE EVENT DATE: 20210301
